FAERS Safety Report 6981091-0 (Version None)
Quarter: 2010Q3

REPORT INFORMATION
  Report Type: 
  Country: None (occurrence: None)
  Receive Date: 20100914
  Receipt Date: 20100909
  Transmission Date: 20110219
  Serious: Yes (Hospitalization)
  Sender: FDA-Public Use
  Company Number: GB-MERCK-1009GBR00040

PATIENT
  Age: 60 Year
  Sex: Female

DRUGS (5)
  1. FOSAMAX [Suspect]
     Indication: OSTEOPOROSIS
     Route: 048
  2. CHLORPHENIRAMINE [Concomitant]
     Route: 065
  3. DIHYDROCODEINE [Concomitant]
     Route: 065
  4. BETAMETHASONE VALERATE AND FUSIDIC ACID [Concomitant]
     Route: 065
  5. NAPROXEN [Concomitant]
     Route: 065

REACTIONS (2)
  - ABSCESS JAW [None]
  - OSTEOMYELITIS [None]
